FAERS Safety Report 14337435 (Version 13)
Quarter: 2018Q3

REPORT INFORMATION
  Report Type: Report from Study
  Country: IT (occurrence: IT)
  Receive Date: 20171229
  Receipt Date: 20180927
  Transmission Date: 20181010
  Serious: Yes (Hospitalization)
  Sender: FDA-Public Use
  Company Number: IT-PFIZER INC-2017552639

PATIENT
  Age: 70 Year
  Sex: Male
  Weight: 62 kg

DRUGS (7)
  1. IRINOTECAN HCL [Suspect]
     Active Substance: IRINOTECAN HYDROCHLORIDE
     Indication: COLORECTAL CANCER METASTATIC
     Dosage: 245 MG, DAILY, CYCLIC
     Route: 041
     Dates: start: 20150923, end: 20150923
  2. IRINOTECAN HCL [Suspect]
     Active Substance: IRINOTECAN HYDROCHLORIDE
     Dosage: 245 MG, MONTHLY
     Route: 041
     Dates: start: 20150923, end: 201510
  3. 5?FU [Suspect]
     Active Substance: FLUOROURACIL
     Indication: COLORECTAL CANCER METASTATIC
     Dosage: 3500 MG, DAILY (CYCLIC)
     Route: 041
     Dates: start: 20150923, end: 20150923
  4. 5?FU [Suspect]
     Active Substance: FLUOROURACIL
     Dosage: 700 MG, DAILY (CYCLIC)
     Route: 040
     Dates: start: 20150923, end: 20150923
  5. LEUCOVORIN. [Suspect]
     Active Substance: LEUCOVORIN
     Indication: COLORECTAL CANCER METASTATIC
     Dosage: 350 MG, DAILY (CYCLIC)
     Route: 041
     Dates: start: 20150923, end: 20150923
  6. AFLIBERCEPT [Suspect]
     Active Substance: AFLIBERCEPT
     Indication: COLORECTAL CANCER METASTATIC
     Dosage: 250 MG, 1X/DAY CYCLIC
     Route: 041
     Dates: start: 20150923, end: 20150923
  7. LEVOTIROXINA [Concomitant]
     Indication: PROPHYLAXIS
     Dosage: UNK
     Dates: start: 1998, end: 20160204

REACTIONS (2)
  - Diarrhoea [Not Recovered/Not Resolved]
  - Hypertension [Recovered/Resolved]

NARRATIVE: CASE EVENT DATE: 20151007
